FAERS Safety Report 11344105 (Version 2)
Quarter: 2016Q1

REPORT INFORMATION
  Report Type: Spontaneous
  Country: US (occurrence: US)
  Receive Date: 20150806
  Receipt Date: 20160120
  Transmission Date: 20160525
  Serious: Yes (Other)
  Sender: FDA-Public Use
  Company Number: US-ACTAVIS-2015-16123

PATIENT
  Age: 42 Year
  Sex: Female
  Weight: 73 kg

DRUGS (3)
  1. OXYCODONE HYDROCHLORIDE (AELLC) [Suspect]
     Active Substance: OXYCODONE HYDROCHLORIDE
     Indication: BREAKTHROUGH PAIN
     Dosage: 10 MG, Q6H, AS NEEDED
     Route: 048
  2. HEPARIN [Concomitant]
     Active Substance: HEPARIN SODIUM
     Indication: ANTICOAGULANT THERAPY
     Dosage: UNK
     Route: 065
  3. METHADONE [Concomitant]
     Active Substance: METHADONE HYDROCHLORIDE
     Indication: PAIN
     Dosage: 5 MG, TID
     Route: 065

REACTIONS (2)
  - Depressed level of consciousness [Recovered/Resolved]
  - Respiratory depression [Recovered/Resolved]
